FAERS Safety Report 15334030 (Version 1)
Quarter: 2018Q3

REPORT INFORMATION
  Report Type: Spontaneous
  Country: US (occurrence: US)
  Receive Date: 20180830
  Receipt Date: 20180830
  Transmission Date: 20181010
  Serious: No
  Sender: FDA-Public Use
  Company Number: US-ASTRAZENECA-2018SF00769

PATIENT
  Age: 25348 Day
  Sex: Female
  Weight: 57.2 kg

DRUGS (6)
  1. ALBUTEROL SULFATE. [Concomitant]
     Active Substance: ALBUTEROL SULFATE
     Indication: SECRETION DISCHARGE
     Dosage: 0.083 PERCENT SOLUTION/3 ML VIAL, EVERY 12 HOURS AND AS NEEDED
  2. ZANTAC [Concomitant]
     Active Substance: RANITIDINE HYDROCHLORIDE
     Indication: GASTROOESOPHAGEAL REFLUX DISEASE
     Dosage: AS NEEDED SOMETIMES AFTER SHE EATS, ONCE OR TWICE A DAY.
  3. SYMBICORT [Suspect]
     Active Substance: BUDESONIDE\FORMOTEROL FUMARATE DIHYDRATE
     Indication: BRONCHIECTASIS
     Dosage: SYMBICORT 2 PUFFS TWICE A DAY
     Route: 055
  4. SALINE [Concomitant]
     Active Substance: SODIUM CHLORIDE
     Dosage: IN THE NEBULIZER, 3 PERCENT
  5. SYMBICORT [Suspect]
     Active Substance: BUDESONIDE\FORMOTEROL FUMARATE DIHYDRATE
     Indication: BRONCHIECTASIS
     Dosage: 160; 2 PUFFS IN THE MORNING AND 1 PUFF AT NIGHT
     Route: 055
     Dates: start: 201712
  6. ALBUTEROL SULFATE. [Concomitant]
     Active Substance: ALBUTEROL SULFATE
     Indication: WHEEZING
     Dosage: 0.083 PERCENT SOLUTION/3 ML VIAL, EVERY 12 HOURS AND AS NEEDED

REACTIONS (13)
  - Eye pain [Unknown]
  - Rhinovirus infection [Unknown]
  - Aphonia [Unknown]
  - Off label use [Unknown]
  - Vocal cord disorder [Unknown]
  - Body height decreased [Unknown]
  - Feeling abnormal [Unknown]
  - Wheezing [Unknown]
  - Product selection error [Unknown]
  - Product use in unapproved indication [Unknown]
  - Condition aggravated [Unknown]
  - Eye disorder [Unknown]
  - Panic disorder [Unknown]

NARRATIVE: CASE EVENT DATE: 20180731
